FAERS Safety Report 9379145 (Version 1)
Quarter: 2013Q3

REPORT INFORMATION
  Report Type: Spontaneous
  Country: DE (occurrence: DE)
  Receive Date: 20130702
  Receipt Date: 20130702
  Transmission Date: 20140515
  Serious: Yes (Hospitalization, Other)
  Sender: FDA-Public Use
  Company Number: DE-ELI_LILLY_AND_COMPANY-DE201306006658

PATIENT
  Sex: Male

DRUGS (5)
  1. ZYPADHERA [Suspect]
     Indication: SCHIZOPHRENIA
     Dosage: 300 MG, 2/M
     Route: 030
     Dates: start: 201201, end: 20130611
  2. ZYPADHERA [Suspect]
     Indication: SCHIZOAFFECTIVE DISORDER
  3. TAXILAN [Concomitant]
     Dosage: 50 MG, QID
  4. BELOC ZOK [Concomitant]
     Dosage: 92.5 MG, EACH MORNING
  5. BELOC ZOK [Concomitant]
     Dosage: 46.25 MG, EACH EVENING

REACTIONS (3)
  - Blood pressure decreased [Recovered/Resolved]
  - Sedation [Unknown]
  - Somnolence [Unknown]
